FAERS Safety Report 8395178 (Version 7)
Quarter: 2013Q3

REPORT INFORMATION
  Report Type: Spontaneous
  Country: US (occurrence: US)
  Receive Date: 20120208
  Receipt Date: 20130906
  Transmission Date: 20140515
  Serious: Yes (Other)
  Sender: FDA-Public Use
  Company Number: US-PFIZER INC-2012029718

PATIENT
  Age: 77 Year
  Sex: Female
  Weight: 122 kg

DRUGS (13)
  1. LYRICA [Suspect]
     Indication: NEUROPATHY PERIPHERAL
     Dosage: 75 MG, 3X/DAY
     Route: 048
  2. LYRICA [Suspect]
     Indication: PAIN IN EXTREMITY
  3. TYLENOL [Concomitant]
     Dosage: UNK
  4. OXYGEN [Concomitant]
     Indication: ILL-DEFINED DISORDER
     Dosage: UNK
  5. MAGNESIUM [Concomitant]
     Dosage: UNK
  6. CETIRIZINE [Concomitant]
     Dosage: UNK
  7. FERROUS SULPHATE [Concomitant]
     Dosage: UNK
  8. XANAX [Concomitant]
     Dosage: UNK
  9. DIOVAN HCT [Concomitant]
     Dosage: UNK
  10. TORSEMIDE [Concomitant]
     Dosage: UNK, 4X/DAY
  11. LOVASTATIN [Concomitant]
     Dosage: UNK
  12. GLIPIZIDE [Concomitant]
     Dosage: UNK
  13. METFORMIN [Concomitant]
     Dosage: UNK

REACTIONS (3)
  - Macular fibrosis [Recovered/Resolved]
  - Deafness [Unknown]
  - Visual acuity reduced [Unknown]
